FAERS Safety Report 5133711-3 (Version None)
Quarter: 2006Q4

REPORT INFORMATION
  Report Type: 
  Country: None (occurrence: None)
  Receive Date: 20061024
  Receipt Date: 20061013
  Transmission Date: 20070319
  Serious: Yes (Other)
  Sender: FDA-Public Use
  Company Number: RO-ROCHE-467143

PATIENT
  Age: 61 Year
  Sex: Female

DRUGS (4)
  1. BONIVA [Suspect]
     Indication: OSTEOPOROSIS POSTMENOPAUSAL
     Route: 048
     Dates: start: 20061002
  2. FUROSEMIDUM [Concomitant]
     Indication: HYPERTENSION
     Route: 048
  3. ENALAPRILUM [Concomitant]
     Indication: HYPERTENSION
     Route: 048
  4. METOPROLOLUM [Concomitant]
     Indication: HYPERTENSION
     Route: 048

REACTIONS (5)
  - EYE PAIN [None]
  - FATIGUE [None]
  - HEADACHE [None]
  - HYPERTENSION [None]
  - NECK PAIN [None]
